FAERS Safety Report 14154420 (Version 1)
Quarter: 2017Q4

REPORT INFORMATION
  Report Type: Spontaneous
  Country: US (occurrence: US)
  Receive Date: 20171102
  Receipt Date: 20171102
  Transmission Date: 20180321
  Serious: No
  Sender: FDA-Public Use
  Company Number: US-PERRIGO-16US022625

PATIENT
  Age: 65 Year
  Sex: Female
  Weight: 63.39 kg

DRUGS (19)
  1. METOPROLOL                         /00376902/ [Concomitant]
     Active Substance: METOPROLOL
     Indication: HEART RATE INCREASED
     Dosage: 12.5 MG, UNKNOWN
     Route: 048
  2. DUREZOL [Concomitant]
     Active Substance: DIFLUPREDNATE
     Indication: ARTERITIS
     Dosage: UNKNOWN, UNKNOWN
     Route: 048
  3. TYLENOL [Concomitant]
     Active Substance: ACETAMINOPHEN
     Indication: PAIN
     Dosage: UNKNOWN, UNKNOWN
     Route: 048
  4. ENTOCORT EC [Suspect]
     Active Substance: BUDESONIDE
     Indication: CROHN^S DISEASE
     Dosage: 9 MG, QD
     Route: 048
     Dates: start: 20081210, end: 200901
  5. CALCIUM                            /00060701/ [Concomitant]
     Active Substance: CALCIUM
     Indication: SUPPLEMENTATION THERAPY
     Dosage: UNKNOWN, UNKNOWN
     Route: 048
  6. DIGOXIN                            /00545901/ [Concomitant]
     Active Substance: DIGOXIN
     Indication: HEART RATE INCREASED
     Dosage: 125 MG, 3 TIMES A WEEK
     Route: 048
     Dates: end: 2014
  7. XIBROM [Concomitant]
     Active Substance: BROMFENAC SODIUM
     Indication: ARTERITIS
     Dosage: UNK
     Route: 065
  8. PREVACID FDT [Concomitant]
     Active Substance: LANSOPRAZOLE
     Indication: GASTROOESOPHAGEAL REFLUX DISEASE
     Dosage: 30 MG, UNKNOWN
     Route: 048
  9. LORATADINE. [Concomitant]
     Active Substance: LORATADINE
     Indication: HYPERSENSITIVITY
     Dosage: UNKNOWN, UNKNOWN
     Route: 048
     Dates: end: 2014
  10. VIGAMOX [Concomitant]
     Active Substance: MOXIFLOXACIN HYDROCHLORIDE
     Indication: ARTERITIS
     Dosage: UNKNOWN, UNKNOWN
     Route: 065
  11. PREDNISONE                         /00044702/ [Concomitant]
     Active Substance: PREDNISONE
     Indication: CROHN^S DISEASE
     Dosage: UNKNOWN, UNKNOWN
     Route: 048
     Dates: end: 2014
  12. MIACALCIN [Concomitant]
     Active Substance: CALCITONIN SALMON
     Indication: OSTEOPOROSIS
     Dosage: UNKNOWN, UNKNOWN
     Route: 048
     Dates: end: 2012
  13. RESTORIL [Concomitant]
     Active Substance: TEMAZEPAM
     Indication: INSOMNIA
     Dosage: UNKNOWN, UNKNOWN
     Route: 048
  14. FLAGYL [Concomitant]
     Active Substance: METRONIDAZOLE\METRONIDAZOLE HYDROCHLORIDE
     Indication: PNEUMONIA
     Dosage: UNKNOWN, PRN
     Route: 048
  15. MULTIVITAMINS, PLAIN [Concomitant]
     Active Substance: VITAMINS
     Indication: SUPPLEMENTATION THERAPY
     Dosage: UNKNOWN, UNKNOWN
     Route: 048
     Dates: end: 2014
  16. MIRALAX [Concomitant]
     Active Substance: POLYETHYLENE GLYCOL 3350
     Indication: CONSTIPATION
     Dosage: UNKNOWN, UNKNOWN
     Route: 048
     Dates: end: 2014
  17. ACTOS [Concomitant]
     Active Substance: PIOGLITAZONE HYDROCHLORIDE
     Indication: DIABETES MELLITUS
     Dosage: UNKNOWN, UNKNOWN
     Route: 048
     Dates: end: 2014
  18. VITAMIN B12 [Concomitant]
     Active Substance: CYANOCOBALAMIN
     Indication: SUPPLEMENTATION THERAPY
     Dosage: UNKNOWN, UNKNOWN
     Route: 048
     Dates: end: 2015
  19. NEVANAC [Concomitant]
     Active Substance: NEPAFENAC
     Indication: ARTERITIS
     Dosage: UNKNOWN, UNKNOWN
     Route: 048

REACTIONS (3)
  - Muscle spasms [Recovered/Resolved]
  - Fat tissue increased [Recovered/Resolved]
  - Blood test abnormal [Unknown]

NARRATIVE: CASE EVENT DATE: 200812
